FAERS Safety Report 18659599 (Version 4)
Quarter: 2023Q4

REPORT INFORMATION
  Report Type: Spontaneous
  Country: US (occurrence: US)
  Receive Date: 20201224
  Receipt Date: 20231109
  Transmission Date: 20240109
  Serious: Yes (Other)
  Sender: FDA-Public Use
  Company Number: US-GILEAD-2020-0509271

PATIENT
  Age: 50 Year
  Sex: Male
  Weight: 90.703 kg

DRUGS (188)
  1. VIREAD [Suspect]
     Active Substance: TENOFOVIR DISOPROXIL FUMARATE
     Indication: HIV infection
     Dosage: UNK
     Route: 048
     Dates: start: 2013
  2. VIREAD [Suspect]
     Active Substance: TENOFOVIR DISOPROXIL FUMARATE
     Dosage: UNK
     Route: 048
     Dates: start: 2001
  3. TRUVADA [Suspect]
     Active Substance: EMTRICITABINE\TENOFOVIR DISOPROXIL FUMARATE
     Indication: HIV infection
     Dosage: UNK
     Route: 048
     Dates: start: 2013
  4. TRUVADA [Suspect]
     Active Substance: EMTRICITABINE\TENOFOVIR DISOPROXIL FUMARATE
     Dosage: UNK
     Route: 048
     Dates: start: 20120416, end: 20190505
  5. DESCOVY [Concomitant]
     Active Substance: EMTRICITABINE\TENOFOVIR ALAFENAMIDE FUMARATE
     Indication: HIV infection
     Dosage: UNK
     Dates: start: 201904, end: 201905
  6. TIVICAY [Concomitant]
     Active Substance: DOLUTEGRAVIR SODIUM
     Indication: HIV infection
     Dosage: UNK
     Dates: start: 201612, end: 201701
  7. INTELENCE [Concomitant]
     Active Substance: ETRAVIRINE
     Indication: HIV infection
     Dosage: UNK
     Dates: start: 201806
  8. ISENTRESS [Concomitant]
     Active Substance: RALTEGRAVIR POTASSIUM
     Indication: HIV infection
     Dosage: UNK
     Dates: start: 201307
  9. PREZCOBIX [Concomitant]
     Active Substance: COBICISTAT\DARUNAVIR ETHANOLATE
     Indication: HIV infection
     Dosage: UNK
     Dates: start: 201710
  10. AFLURIA NOS [Concomitant]
     Active Substance: INFLUENZA VIRUS VACCINE TRIVALENT TYPE A+B AFLURIA
     Dosage: UNK
     Dates: start: 202008, end: 202008
  11. ALBUTEROL [Concomitant]
     Active Substance: ALBUTEROL
     Indication: Asthma
     Dosage: UNK
     Dates: start: 201412, end: 201508
  12. ALBUTEROL [Concomitant]
     Active Substance: ALBUTEROL
     Dosage: UNK
     Dates: start: 201904, end: 201904
  13. AMITRIPTYLINE [Concomitant]
     Active Substance: AMITRIPTYLINE
     Indication: Depression
     Dosage: UNK
     Dates: start: 201011, end: 201106
  14. AMOXICILLIN\CLAVULANATE POTASSIUM [Concomitant]
     Active Substance: AMOXICILLIN\CLAVULANATE POTASSIUM
     Indication: Bacterial infection
     Dosage: UNK
     Dates: start: 201810, end: 201811
  15. ANDRODERM [Concomitant]
     Active Substance: TESTOSTERONE
     Indication: Hormone therapy
     Dosage: UNK
     Dates: start: 201204, end: 201206
  16. ATOVAQUONE [Concomitant]
     Active Substance: ATOVAQUONE
     Indication: Fungal infection
     Dosage: UNK
     Dates: start: 201602, end: 201612
  17. VRAYLAR [Concomitant]
     Active Substance: CARIPRAZINE
     Indication: Schizophrenia
     Dosage: UNK
  18. BUPROPION [Concomitant]
     Active Substance: BUPROPION
     Indication: Depression
     Dosage: UNK
     Dates: start: 201501, end: 201502
  19. BUSPIRONE [Concomitant]
     Active Substance: BUSPIRONE HYDROCHLORIDE
     Indication: Anxiety
     Dosage: UNK
     Dates: start: 201802, end: 201805
  20. BUTRANS [Concomitant]
     Active Substance: BUPRENORPHINE
     Indication: Pain
     Dosage: UNK
     Dates: start: 201603, end: 201603
  21. CEFUROXIME [Concomitant]
     Active Substance: CEFUROXIME
     Indication: Bacterial infection
     Dosage: UNK
     Dates: start: 201903, end: 201904
  22. CEFUROXIME [Concomitant]
     Active Substance: CEFUROXIME
     Dosage: UNK
     Dates: start: 201811, end: 201811
  23. CEPHALEXIN [Concomitant]
     Active Substance: CEPHALEXIN
     Indication: Bacterial infection
     Dosage: UNK
     Dates: start: 201708, end: 201708
  24. CHLORHEXIDINE [Concomitant]
     Active Substance: CHLORHEXIDINE\CHLORHEXIDINE GLUCONATE
     Dosage: UNK
     Dates: start: 201712, end: 201904
  25. CHLORZOXAZONE [Concomitant]
     Active Substance: CHLORZOXAZONE
     Indication: Pain
     Dosage: UNK
     Dates: start: 201709, end: 201711
  26. CIPRODEX [Concomitant]
     Active Substance: CIPROFLOXACIN HYDROCHLORIDE\DEXAMETHASONE
     Indication: Ear infection
     Dosage: UNK
     Dates: start: 201602, end: 201603
  27. CIPRODEX [Concomitant]
     Active Substance: CIPROFLOXACIN HYDROCHLORIDE\DEXAMETHASONE
     Dosage: UNK
     Dates: start: 201903, end: 201903
  28. CIPRODEX [Concomitant]
     Active Substance: CIPROFLOXACIN HYDROCHLORIDE\DEXAMETHASONE
     Dosage: UNK
     Dates: start: 201907, end: 201907
  29. CIPRODEX [Concomitant]
     Active Substance: CIPROFLOXACIN HYDROCHLORIDE\DEXAMETHASONE
     Dosage: UNK
     Dates: start: 200901, end: 200902
  30. CIPRODEX [Concomitant]
     Active Substance: CIPROFLOXACIN HYDROCHLORIDE\DEXAMETHASONE
     Dosage: UNK
     Dates: start: 201410, end: 201504
  31. CIPROFLOXACIN [Concomitant]
     Active Substance: CIPROFLOXACIN
     Indication: Bacterial infection
     Dosage: UNK
     Dates: start: 201802, end: 201803
  32. CLINDAMYCIN [Concomitant]
     Active Substance: CLINDAMYCIN
     Indication: Bacterial infection
     Dosage: UNK
     Dates: start: 201802, end: 201806
  33. CLOBETASOL PROPIONATE [Concomitant]
     Active Substance: CLOBETASOL PROPIONATE
     Indication: Skin disorder
     Dosage: UNK
     Dates: start: 201506, end: 201508
  34. CLONIDINE [Concomitant]
     Active Substance: CLONIDINE
     Indication: Hypertension
     Dosage: UNK
     Dates: start: 201603, end: 201603
  35. BETAMETHASONE\CLOTRIMAZOLE [Concomitant]
     Active Substance: BETAMETHASONE\CLOTRIMAZOLE
     Indication: Fungal infection
     Dosage: UNK
     Dates: start: 201202, end: 201203
  36. CLOTRIMAZOLE [Concomitant]
     Active Substance: CLOTRIMAZOLE
     Indication: Fungal infection
     Dosage: UNK
     Dates: start: 201803, end: 201804
  37. CYCLOBENZAPRINE [Concomitant]
     Active Substance: CYCLOBENZAPRINE
     Dosage: UNK
     Dates: start: 201608, end: 201609
  38. CYCLOBENZAPRINE [Concomitant]
     Active Substance: CYCLOBENZAPRINE
     Dosage: UNK
     Dates: start: 201708, end: 201709
  39. VITAMINS NOS [Concomitant]
     Active Substance: VITAMINS
     Dosage: UNK
  40. DENAVIR [Concomitant]
     Active Substance: PENCICLOVIR
     Indication: Oral herpes
     Dosage: UNK
     Dates: start: 201612, end: 201612
  41. DESOXIMETASONE [Concomitant]
     Active Substance: DESOXIMETASONE
     Indication: Skin disorder
     Dosage: UNK
     Dates: start: 201505, end: 201509
  42. DESVENLAFAXINE [Concomitant]
     Active Substance: DESVENLAFAXINE
     Indication: Depression
     Dosage: UNK
     Dates: start: 201710, end: 201908
  43. DIAZEPAM [Concomitant]
     Active Substance: DIAZEPAM
     Indication: Anxiety
     Dosage: UNK
     Dates: start: 201104, end: 201105
  44. DIAZEPAM [Concomitant]
     Active Substance: DIAZEPAM
     Dosage: UNK
     Dates: start: 201302, end: 201303
  45. DIAZEPAM [Concomitant]
     Active Substance: DIAZEPAM
     Dosage: UNK
     Dates: start: 201808, end: 201809
  46. DIAZEPAM [Concomitant]
     Active Substance: DIAZEPAM
     Dosage: UNK
     Dates: start: 201808, end: 201810
  47. DIVALPROEX SODIUM [Concomitant]
     Active Substance: DIVALPROEX SODIUM
     Indication: Seizure
     Dosage: UNK
     Dates: start: 201807, end: 201811
  48. DIVALPROEX SODIUM [Concomitant]
     Active Substance: DIVALPROEX SODIUM
     Dosage: UNK
     Dates: start: 201809, end: 201903
  49. DIVALPROEX SODIUM [Concomitant]
     Active Substance: DIVALPROEX SODIUM
     Dosage: UNK
     Dates: start: 201901, end: 201903
  50. DIVALPROEX SODIUM [Concomitant]
     Active Substance: DIVALPROEX SODIUM
     Dosage: UNK
     Dates: start: 201405, end: 201407
  51. DIVALPROEX SODIUM [Concomitant]
     Active Substance: DIVALPROEX SODIUM
     Dosage: UNK
  52. DOXYCYCLINE [Concomitant]
     Active Substance: DOXYCYCLINE
     Indication: Bacterial infection
     Dosage: UNK
     Dates: start: 201709, end: 201709
  53. DOXYCYCLINE [Concomitant]
     Active Substance: DOXYCYCLINE
     Dosage: UNK
     Dates: start: 201709, end: 201710
  54. DOXYCYCLINE [Concomitant]
     Active Substance: DOXYCYCLINE
     Dosage: UNK
     Dates: start: 201910, end: 201911
  55. DRONABINOL [Concomitant]
     Active Substance: DRONABINOL
     Indication: Nausea
     Dosage: UNK
     Dates: start: 201104, end: 201106
  56. DRONABINOL [Concomitant]
     Active Substance: DRONABINOL
     Dosage: UNK
     Dates: start: 201501, end: 201503
  57. DRONABINOL [Concomitant]
     Active Substance: DRONABINOL
     Dosage: UNK
     Dates: start: 201710, end: 201806
  58. DRONABINOL [Concomitant]
     Active Substance: DRONABINOL
     Dosage: UNK
     Dates: start: 201803, end: 201805
  59. DRONABINOL [Concomitant]
     Active Substance: DRONABINOL
     Dosage: UNK
     Dates: start: 201803, end: 201808
  60. DRONABINOL [Concomitant]
     Active Substance: DRONABINOL
     Dosage: UNK
     Dates: start: 201907, end: 201909
  61. DRONABINOL [Concomitant]
     Active Substance: DRONABINOL
     Dosage: UNK
     Dates: start: 202002, end: 202002
  62. EMBEDA [Concomitant]
     Active Substance: MORPHINE SULFATE\NALTREXONE HYDROCHLORIDE
     Indication: Pain
     Dosage: UNK
     Dates: start: 201005, end: 201007
  63. EMBEDA [Concomitant]
     Active Substance: MORPHINE SULFATE\NALTREXONE HYDROCHLORIDE
     Dosage: UNK
     Dates: start: 201006, end: 201008
  64. EMBEDA [Concomitant]
     Active Substance: MORPHINE SULFATE\NALTREXONE HYDROCHLORIDE
     Dosage: UNK
     Dates: start: 201007, end: 201009
  65. FAMOTIDINE [Concomitant]
     Active Substance: FAMOTIDINE
     Indication: Gastrooesophageal reflux disease
     Dosage: UNK
     Dates: start: 201412, end: 201502
  66. FAMOTIDINE [Concomitant]
     Active Substance: FAMOTIDINE
     Indication: Gastrooesophageal reflux disease
  67. FLUVIRIN [INFLUENZA VACCINE INACT SAG 3V] [Concomitant]
     Dosage: UNK
     Dates: start: 201211, end: 201211
  68. FLUVIRIN [INFLUENZA VACCINE INACT SAG 3V] [Concomitant]
     Dosage: UNK
     Dates: start: 201109, end: 201109
  69. GABAPENTIN [Concomitant]
     Active Substance: GABAPENTIN
     Indication: Pain
     Dosage: UNK
     Dates: start: 201006, end: 201009
  70. GABAPENTIN [Concomitant]
     Active Substance: GABAPENTIN
     Dosage: UNK
     Dates: start: 201009, end: 201012
  71. GABAPENTIN [Concomitant]
     Active Substance: GABAPENTIN
     Dosage: UNK
     Dates: start: 201010, end: 201101
  72. GABAPENTIN [Concomitant]
     Active Substance: GABAPENTIN
     Dosage: UNK
     Dates: start: 201104, end: 201107
  73. GEMFIBROZIL [Concomitant]
     Active Substance: GEMFIBROZIL
     Indication: Blood cholesterol increased
     Dosage: UNK
     Dates: start: 201209, end: 201211
  74. GRIFULVIN [Concomitant]
     Active Substance: GRISEOFULVIN
     Indication: Fungal infection
     Dosage: UNK
     Dates: start: 201210, end: 201211
  75. HYDROCODONE [Concomitant]
     Active Substance: HYDROCODONE
     Indication: Pain
     Dosage: UNK
     Dates: start: 201608, end: 201609
  76. HYDROCODONE [Concomitant]
     Active Substance: HYDROCODONE
     Dosage: UNK
     Dates: start: 201609, end: 201610
  77. HYDROCODONE [Concomitant]
     Active Substance: HYDROCODONE
     Dosage: UNK
     Dates: start: 201612, end: 201701
  78. ACETAMINOPHEN\HYDROCODONE [Concomitant]
     Active Substance: ACETAMINOPHEN\HYDROCODONE
     Indication: Pain
     Dosage: UNK
     Dates: start: 201010, end: 201101
  79. ACETAMINOPHEN\HYDROCODONE [Concomitant]
     Active Substance: ACETAMINOPHEN\HYDROCODONE
     Dosage: UNK
     Dates: start: 201011, end: 201102
  80. ACETAMINOPHEN\HYDROCODONE [Concomitant]
     Active Substance: ACETAMINOPHEN\HYDROCODONE
     Dosage: UNK
     Dates: start: 201108, end: 201111
  81. ACETAMINOPHEN\HYDROCODONE [Concomitant]
     Active Substance: ACETAMINOPHEN\HYDROCODONE
     Dosage: UNK
     Dates: start: 201208, end: 201209
  82. HYDROCODONE BITARTRATE AND ACETAMINOPHEN [Concomitant]
     Active Substance: ACETAMINOPHEN\HYDROCODONE BITARTRATE
     Indication: Pain
     Dosage: UNK
     Dates: start: 201001, end: 201001
  83. HYDROCODONE BITARTRATE AND ACETAMINOPHEN [Concomitant]
     Active Substance: ACETAMINOPHEN\HYDROCODONE BITARTRATE
     Dosage: UNK
     Dates: start: 201005, end: 201007
  84. HYDROCODONE BITARTRATE AND ACETAMINOPHEN [Concomitant]
     Active Substance: ACETAMINOPHEN\HYDROCODONE BITARTRATE
     Dosage: UNK
     Dates: start: 201006, end: 201009
  85. HYDROCODONE BITARTRATE AND ACETAMINOPHEN [Concomitant]
     Active Substance: ACETAMINOPHEN\HYDROCODONE BITARTRATE
     Dosage: UNK
     Dates: start: 201009, end: 201012
  86. HYDROMORPHONE HCL [Concomitant]
     Active Substance: HYDROMORPHONE HYDROCHLORIDE
     Indication: Pain
     Dosage: UNK
     Dates: start: 201003, end: 201003
  87. HYDROXYZINE HYDROCHLORIDE [Concomitant]
     Active Substance: HYDROXYZINE HYDROCHLORIDE
     Indication: Hypersensitivity
     Dosage: UNK
     Dates: start: 201302, end: 201305
  88. IBUPROFEN [Concomitant]
     Active Substance: IBUPROFEN
     Indication: Pain
     Dosage: UNK
     Dates: start: 201701, end: 201702
  89. IPRATROPIUM [Concomitant]
     Active Substance: IPRATROPIUM
     Indication: Asthma
     Dosage: UNK
     Dates: start: 201412, end: 201506
  90. KETOCONAZOLE [Concomitant]
     Active Substance: KETOCONAZOLE
     Indication: Fungal infection
     Dosage: UNK
     Dates: start: 202008, end: 202010
  91. KETOROLAC [Concomitant]
     Active Substance: KETOROLAC TROMETHAMINE
     Indication: Pain
     Dosage: UNK
     Dates: start: 201108, end: 201108
  92. LEVAQUIN [Concomitant]
     Active Substance: LEVOFLOXACIN
     Indication: Bacterial infection
     Dosage: UNK
     Dates: start: 201105, end: 201105
  93. LEVOTHYROXINE [Concomitant]
     Active Substance: LEVOTHYROXINE
     Indication: Thyroid disorder
     Dosage: UNK
     Dates: start: 201606
  94. LIDOCAINE [Concomitant]
     Active Substance: LIDOCAINE
     Dosage: UNK
     Dates: start: 201410, end: 201502
  95. LIDOCAINE [Concomitant]
     Active Substance: LIDOCAINE
     Dosage: UNK
     Dates: start: 201606, end: 201610
  96. LIDOCAINE [Concomitant]
     Active Substance: LIDOCAINE
     Dosage: UNK
     Dates: start: 201612, end: 201704
  97. LIDOCAINE\PRILOCAINE [Concomitant]
     Active Substance: LIDOCAINE\PRILOCAINE
     Dosage: UNK
     Dates: start: 201409, end: 201410
  98. LIDOCAINE\PRILOCAINE [Concomitant]
     Active Substance: LIDOCAINE\PRILOCAINE
     Dosage: UNK
     Dates: start: 201410, end: 201411
  99. LIDOCAINE\PRILOCAINE [Concomitant]
     Active Substance: LIDOCAINE\PRILOCAINE
     Dosage: UNK
     Dates: start: 201410, end: 201506
  100. LITHIUM CARBONATE [Concomitant]
     Active Substance: LITHIUM CARBONATE
     Indication: Bipolar disorder
     Dosage: UNK
     Dates: start: 201306, end: 201309
  101. LORAZEPAM [Concomitant]
     Active Substance: LORAZEPAM
     Indication: Anxiety
     Dosage: UNK
     Dates: start: 200808, end: 200809
  102. LORAZEPAM [Concomitant]
     Active Substance: LORAZEPAM
     Indication: Depression
     Dosage: UNK
     Dates: start: 201409, end: 201410
  103. LUZU [Concomitant]
     Active Substance: LULICONAZOLE
     Indication: Fungal infection
     Dosage: UNK
     Dates: start: 201407, end: 201408
  104. LYRICA [Concomitant]
     Active Substance: PREGABALIN
     Indication: Pain
     Dosage: UNK
     Dates: start: 201609, end: 201611
  105. LYRICA [Concomitant]
     Active Substance: PREGABALIN
     Dosage: UNK
     Dates: start: 201709, end: 201711
  106. MECLIZINE [Concomitant]
     Active Substance: MECLIZINE HYDROCHLORIDE
     Indication: Nausea
     Dosage: UNK
     Dates: start: 201707, end: 201709
  107. MEGACE ES [Concomitant]
     Active Substance: MEGESTROL ACETATE
     Indication: Decreased appetite
     Dosage: UNK
     Dates: start: 201403, end: 201408
  108. MELOXICAM [Concomitant]
     Active Substance: MELOXICAM
     Indication: Inflammation
     Dosage: UNK
     Dates: start: 201206, end: 201207
  109. MELOXICAM [Concomitant]
     Active Substance: MELOXICAM
     Indication: Pain
     Dosage: UNK
     Dates: start: 201208, end: 201208
  110. METHOCARBAMOL [Concomitant]
     Active Substance: METHOCARBAMOL
     Indication: Pain
     Dosage: UNK
     Dates: start: 201710, end: 201801
  111. METHYLPREDNISOLONE [Concomitant]
     Active Substance: METHYLPREDNISOLONE
     Indication: Arthritis
     Dosage: UNK
     Dates: start: 201107, end: 201108
  112. METHYLPREDNISOLONE [Concomitant]
     Active Substance: METHYLPREDNISOLONE
     Dosage: UNK
     Dates: start: 201408, end: 201409
  113. METHYLPREDNISOLONE [Concomitant]
     Active Substance: METHYLPREDNISOLONE
     Dosage: UNK
     Dates: start: 201708, end: 201709
  114. MIRTAZAPINE [Concomitant]
     Active Substance: MIRTAZAPINE
     Indication: Anxiety
     Dosage: UNK
     Dates: start: 201405, end: 201406
  115. MIRTAZAPINE [Concomitant]
     Active Substance: MIRTAZAPINE
     Indication: Depression
  116. MORPHINE [Concomitant]
     Active Substance: MORPHINE
     Indication: Pain
     Dosage: UNK
     Dates: start: 201507, end: 201509
  117. MORPHINE SULFATE [Concomitant]
     Active Substance: MORPHINE SULFATE
     Indication: Pain
     Dosage: UNK
     Dates: start: 201009, end: 201011
  118. MORPHINE SULFATE [Concomitant]
     Active Substance: MORPHINE SULFATE
     Dosage: UNK
     Dates: start: 201104, end: 201107
  119. MORPHINE SULFATE [Concomitant]
     Active Substance: MORPHINE SULFATE
     Dosage: UNK
     Dates: start: 201110, end: 201201
  120. MORPHINE SULFATE [Concomitant]
     Active Substance: MORPHINE SULFATE
     Dosage: UNK
     Dates: start: 201212, end: 201302
  121. MORPHINE SULFATE [Concomitant]
     Active Substance: MORPHINE SULFATE
     Dosage: UNK
     Dates: start: 201407, end: 201409
  122. MORPHINE SULFATE [Concomitant]
     Active Substance: MORPHINE SULFATE
     Dosage: UNK
     Dates: start: 201410, end: 201412
  123. MORPHINE SULFATE [Concomitant]
     Active Substance: MORPHINE SULFATE
     Dosage: UNK
     Dates: start: 201412, end: 201502
  124. MORPHINE SULFATE [Concomitant]
     Active Substance: MORPHINE SULFATE
     Dosage: UNK
     Dates: start: 201505, end: 201507
  125. MUPIROCIN [Concomitant]
     Active Substance: MUPIROCIN
     Indication: Bacterial infection
     Dosage: UNK
     Dates: start: 201411, end: 201412
  126. MUPIROCIN [Concomitant]
     Active Substance: MUPIROCIN
     Dosage: UNK
     Dates: start: 202011, end: 202012
  127. NYSTATIN [Concomitant]
     Active Substance: NYSTATIN
     Indication: Fungal infection
     Dosage: UNK
     Dates: start: 201908, end: 201909
  128. OLANZAPINE [Concomitant]
     Active Substance: OLANZAPINE
     Indication: Schizophrenia
     Dosage: UNK
     Dates: start: 201710
  129. ONDANSETRON [Concomitant]
     Active Substance: ONDANSETRON
     Indication: Nausea
     Dosage: UNK
     Dates: start: 201710, end: 201712
  130. ONDANSETRON [Concomitant]
     Active Substance: ONDANSETRON
     Dosage: UNK
     Dates: start: 201802, end: 201803
  131. ONDANSETRON [Concomitant]
     Active Substance: ONDANSETRON
     Dosage: UNK
     Dates: start: 201902, end: 201903
  132. ONDANSETRON [Concomitant]
     Active Substance: ONDANSETRON
     Dosage: UNK
     Dates: start: 202008, end: 202010
  133. ONDANSETRON [Concomitant]
     Active Substance: ONDANSETRON
     Indication: Nausea
     Dosage: UNK
     Dates: start: 201003, end: 201003
  134. ONDANSETRON [Concomitant]
     Active Substance: ONDANSETRON
     Dosage: UNK
     Dates: start: 201103, end: 201106
  135. ONDANSETRON [Concomitant]
     Active Substance: ONDANSETRON
     Dosage: UNK
     Dates: start: 201208, end: 201212
  136. ONDANSETRON [Concomitant]
     Active Substance: ONDANSETRON
     Dosage: UNK
     Dates: start: 201311, end: 201401
  137. ONDANSETRON [Concomitant]
     Active Substance: ONDANSETRON
     Dosage: UNK
     Dates: start: 201410, end: 201411
  138. ONDANSETRON [Concomitant]
     Active Substance: ONDANSETRON
     Dosage: UNK
     Dates: start: 201412, end: 201502
  139. OSELTAMIVIR [Concomitant]
     Active Substance: OSELTAMIVIR
     Indication: Influenza
     Dosage: UNK
     Dates: start: 201902, end: 201903
  140. OXCARBAZEPINE [Concomitant]
     Active Substance: OXCARBAZEPINE
     Indication: Seizure
     Dosage: UNK
     Dates: start: 201710, end: 201904
  141. OXCARBAZEPINE [Concomitant]
     Active Substance: OXCARBAZEPINE
     Dosage: UNK
     Dates: start: 201808, end: 201901
  142. OXCARBAZEPINE [Concomitant]
     Active Substance: OXCARBAZEPINE
     Dosage: UNK
     Dates: start: 201907, end: 201909
  143. OXYCODONE [Concomitant]
     Active Substance: OXYCODONE
     Indication: Pain
     Dosage: UNK
     Dates: start: 201203, end: 201206
  144. OXYCODONE [Concomitant]
     Active Substance: OXYCODONE
     Dosage: UNK
     Dates: start: 201212, end: 201304
  145. OXYCODONE [Concomitant]
     Active Substance: OXYCODONE
     Dosage: UNK
     Dates: start: 201412, end: 201504
  146. OXYCODONE [Concomitant]
     Active Substance: OXYCODONE
     Dosage: UNK
     Dates: start: 201505, end: 201509
  147. OXYCODONE [Concomitant]
     Active Substance: OXYCODONE
     Dosage: UNK
     Dates: start: 201507, end: 201511
  148. OXYCODONE [Concomitant]
     Active Substance: OXYCODONE
     Dosage: UNK
     Dates: start: 201705, end: 201706
  149. OXYCODONE [Concomitant]
     Active Substance: OXYCODONE
     Dosage: UNK
     Dates: start: 201708, end: 201712
  150. OXYCODONE [Concomitant]
     Active Substance: OXYCODONE
     Dosage: UNK
     Dates: start: 201709, end: 201801
  151. OXYCODONE AND ACETAMINOPHEN [Concomitant]
     Active Substance: ACETAMINOPHEN\OXYCODONE HYDROCHLORIDE
     Indication: Pain
     Dosage: UNK
     Dates: start: 201110, end: 201201
  152. OXYCODONE AND ACETAMINOPHEN [Concomitant]
     Active Substance: ACETAMINOPHEN\OXYCODONE HYDROCHLORIDE
     Dosage: UNK
     Dates: start: 201112, end: 201203
  153. ACETAMINOPHEN\OXYCODONE HYDROCHLORIDE [Concomitant]
     Active Substance: ACETAMINOPHEN\OXYCODONE HYDROCHLORIDE
     Indication: Pain
     Dosage: UNK
     Dates: start: 200901, end: 200902
  154. PENICILLIN [Concomitant]
     Active Substance: PENICILLIN
     Indication: Bacterial infection
     Dosage: UNK
     Dates: start: 201712, end: 201801
  155. PENICILLIN V POTASSIUM [Concomitant]
     Active Substance: PENICILLIN V POTASSIUM
     Indication: Bacterial infection
     Dosage: UNK
     Dates: start: 201312, end: 201312
  156. PILOCARPINE [Concomitant]
     Active Substance: PILOCARPINE
     Dosage: UNK
     Dates: start: 201412, end: 201503
  157. PNEUMOVAX 23 [Concomitant]
     Active Substance: PNEUMOCOCCAL VACCINE, POLYVALENT 23
     Dosage: UNK
     Dates: start: 201210, end: 201210
  158. PRAVASTATIN [Concomitant]
     Active Substance: PRAVASTATIN
     Indication: Blood cholesterol increased
     Dosage: UNK
     Dates: start: 201808
  159. PREDNISONE [Concomitant]
     Active Substance: PREDNISONE
     Dosage: UNK
     Dates: start: 201110, end: 201111
  160. PREDNISONE [Concomitant]
     Active Substance: PREDNISONE
     Dosage: UNK
     Dates: start: 201802, end: 201803
  161. PRISTIQ EXTENDED-RELEASE [Concomitant]
     Active Substance: DESVENLAFAXINE SUCCINATE
     Indication: Depression
     Dosage: UNK
     Dates: start: 201602, end: 201611
  162. PRISTIQ EXTENDED-RELEASE [Concomitant]
     Active Substance: DESVENLAFAXINE SUCCINATE
     Dosage: UNK
     Dates: start: 201612, end: 201701
  163. PROCHLORPERAZINE [Concomitant]
     Active Substance: PROCHLORPERAZINE
     Indication: Nausea
     Dosage: UNK
     Dates: start: 201409, end: 201410
  164. PROCHLORPERAZINE [Concomitant]
     Active Substance: PROCHLORPERAZINE
     Dosage: UNK
     Dates: start: 201412, end: 201502
  165. SENNA LEAF [Concomitant]
     Active Substance: SENNA LEAF
     Indication: Constipation
     Dosage: UNK
     Dates: start: 201412, end: 201502
  166. DOCUSATE SODIUM\SENNA LEAF [Concomitant]
     Active Substance: DOCUSATE SODIUM\SENNA LEAF
     Indication: Constipation
     Dosage: UNK
     Dates: start: 201009, end: 201011
  167. SEROQUEL XR [Concomitant]
     Active Substance: QUETIAPINE FUMARATE
     Indication: Depression
     Dosage: UNK
     Dates: start: 201201, end: 201202
  168. SHINGRIX [Concomitant]
     Active Substance: RECOMBINANT VARICELLA ZOSTER VIRUS (VZV) GLYCOPROTEIN E
     Dosage: UNK
     Dates: start: 202008, end: 202008
  169. SHINGRIX [Concomitant]
     Active Substance: RECOMBINANT VARICELLA ZOSTER VIRUS (VZV) GLYCOPROTEIN E
     Dosage: UNK
     Dates: start: 202010, end: 202010
  170. SPRIX [Concomitant]
     Active Substance: KETOROLAC TROMETHAMINE
     Indication: Pain
     Dosage: UNK
     Dates: start: 201208, end: 201208
  171. TERBINAFINE [Concomitant]
     Active Substance: TERBINAFINE
     Indication: Fungal infection
     Dosage: UNK
     Dates: start: 201504, end: 201505
  172. TERBINAFINE [Concomitant]
     Active Substance: TERBINAFINE
     Dosage: UNK
     Dates: start: 201808, end: 201810
  173. TERBINAFINE [Concomitant]
     Active Substance: TERBINAFINE
     Dosage: UNK
     Dates: start: 202012, end: 202101
  174. TERBINAFINE [Concomitant]
     Active Substance: TERBINAFINE
     Dosage: UNK
  175. TESTOSTERONE CYPIONATE [Concomitant]
     Active Substance: TESTOSTERONE CYPIONATE
     Indication: Hormone therapy
     Dosage: UNK
     Dates: start: 201310, end: 201310
  176. TESTOSTERONE CYPIONATE [Concomitant]
     Active Substance: TESTOSTERONE CYPIONATE
     Dosage: UNK
     Dates: start: 201312, end: 201312
  177. TETRA CENTRAL [Concomitant]
     Indication: Bacterial infection
     Dosage: UNK
     Dates: start: 201609, end: 201611
  178. TETRA CENTRAL [Concomitant]
     Dosage: UNK
     Dates: start: 201609, end: 201705
  179. TIZANIDINE [Concomitant]
     Active Substance: TIZANIDINE
     Indication: Muscle relaxant therapy
     Dosage: UNK
     Dates: start: 201709, end: 201712
  180. TRAMADOL [Concomitant]
     Active Substance: TRAMADOL\TRAMADOL HYDROCHLORIDE
     Indication: Pain
     Dosage: UNK
     Dates: start: 201701, end: 201702
  181. TRAZODONE [Concomitant]
     Active Substance: TRAZODONE HYDROCHLORIDE
     Indication: Depression
     Dosage: UNK
     Dates: start: 201306, end: 201308
  182. TRIAMCINOLONE [Concomitant]
     Active Substance: TRIAMCINOLONE
     Indication: Skin disorder
     Dosage: UNK
     Dates: start: 201908, end: 201909
  183. TRIAMCINOLONE [Concomitant]
     Active Substance: TRIAMCINOLONE
     Dosage: UNK
     Dates: start: 202008, end: 202011
  184. ADENOSINE [Concomitant]
     Active Substance: ADENOSINE
     Indication: Blood cholesterol increased
     Dosage: UNK
     Dates: start: 201204, end: 201205
  185. VENTOLIN [Concomitant]
     Active Substance: ALBUTEROL SULFATE
     Indication: Asthma
     Dosage: UNK
     Dates: start: 201903, end: 201904
  186. VENTOLIN [Concomitant]
     Active Substance: ALBUTEROL SULFATE
     Dosage: UNK
     Dates: start: 201904, end: 201905
  187. DICLOFENAC POTASSIUM [Concomitant]
     Active Substance: DICLOFENAC POTASSIUM
     Indication: Pain
     Dosage: UNK
     Dates: start: 201312, end: 201504
  188. TENOFOVIR [Concomitant]
     Active Substance: TENOFOVIR

REACTIONS (8)
  - Multiple fractures [Recovered/Resolved]
  - Renal failure [Recovered/Resolved]
  - Emotional distress [Unknown]
  - Anhedonia [Unknown]
  - Pain [Unknown]
  - Anxiety [Unknown]
  - Bone density decreased [Recovered/Resolved]
  - Osteopenia [Not Recovered/Not Resolved]

NARRATIVE: CASE EVENT DATE: 20180301
